FAERS Safety Report 9813231 (Version 2)
Quarter: 2014Q1

REPORT INFORMATION
  Report Type: Report from Study
  Country: US (occurrence: US)
  Receive Date: 20140113
  Receipt Date: 20140113
  Transmission Date: 20141002
  Serious: Yes (Hospitalization)
  Sender: FDA-Public Use
  Company Number: US-IPSEN BIOPHARMACEUTICALS, INC.-2013-5844

PATIENT
  Age: 34 Year
  Sex: Male

DRUGS (7)
  1. SOMATULINE DEPOT INJECTION (90MG) [Suspect]
     Indication: ACROMEGALY
     Dosage: 90 MG
     Route: 058
     Dates: start: 20131217
  2. ANTIBIOTICS [Concomitant]
     Indication: COUGH
     Dosage: NOT REPORTED
     Route: 065
  3. GUAIFENESIN [Concomitant]
     Indication: COUGH
     Dosage: NOT REPORTED
     Route: 065
  4. ADX [Concomitant]
     Indication: COUGH
     Dosage: NOT REPORTED
     Route: 065
  5. BACLOFEN [Concomitant]
     Indication: MUSCLE RELAXANT THERAPY
     Dosage: NOT REPORTED
     Route: 065
  6. TOOL SOFTENER [Concomitant]
     Indication: PRODUCT USED FOR UNKNOWN INDICATION
     Dosage: NOT REPORTED
     Route: 065
  7. PAIN KILLER [Concomitant]
     Indication: HEADACHE
     Dosage: NOT REPORTED
     Route: 065

REACTIONS (6)
  - Headache [Recovering/Resolving]
  - Condition aggravated [Recovering/Resolving]
  - Insomnia [Unknown]
  - Decreased appetite [Unknown]
  - Swelling face [Not Recovered/Not Resolved]
  - Abdominal pain [Recovered/Resolved]
